FAERS Safety Report 9133412 (Version 5)
Quarter: 2023Q4

REPORT INFORMATION
  Report Type: Spontaneous
  Country: US (occurrence: US)
  Receive Date: 20130301
  Receipt Date: 20231128
  Transmission Date: 20240109
  Serious: Yes (Hospitalization, Other)
  Sender: FDA-Public Use
  Company Number: US-PFIZER INC-2013071901

PATIENT
  Age: 54 Year
  Sex: Female
  Weight: 65 kg

DRUGS (17)
  1. ESTRING [Suspect]
     Active Substance: ESTRADIOL
     Indication: Hormone therapy
     Dosage: UNK, EVERY 3 MONTHS
     Route: 067
  2. ESTRING [Suspect]
     Active Substance: ESTRADIOL
     Indication: Menopause
     Dosage: UNK, EVERY 3 MONTHS
     Route: 067
     Dates: start: 2011
  3. SURFAK [Concomitant]
     Indication: Faeces hard
     Dosage: UNK
     Dates: start: 1999
  4. KLONOPIN [Concomitant]
     Active Substance: CLONAZEPAM
     Dosage: UNK
     Dates: start: 1999
  5. SOMA [Concomitant]
     Active Substance: CARISOPRODOL
     Dosage: UNK
     Dates: start: 1999
  6. LACTULOSE [Concomitant]
     Active Substance: LACTULOSE
     Dosage: UNK
     Dates: start: 2006
  7. BUMEX [Concomitant]
     Active Substance: BUMETANIDE
     Dosage: UNK
     Dates: start: 2010
  8. CEQUA [Concomitant]
     Active Substance: CYCLOSPORINE
     Dosage: UNK
  9. ALDACTONE [Concomitant]
     Active Substance: SPIRONOLACTONE
     Dosage: UNK
  10. LOSARTAN [Concomitant]
     Active Substance: LOSARTAN
     Dosage: UNK
  11. CALCIUM CITRATE [Concomitant]
     Active Substance: CALCIUM CITRATE
     Dosage: UNK
  12. MAGNESIUM CITRATE [Concomitant]
     Active Substance: MAGNESIUM CITRATE
     Dosage: UNK
  13. CODEINE [Concomitant]
     Active Substance: CODEINE
     Dosage: UNK, AS NEEDED
  14. LUNESTA [Concomitant]
     Active Substance: ESZOPICLONE
     Dosage: UNK, AS NEEDED
  15. METROGEL [Concomitant]
     Active Substance: METRONIDAZOLE
     Dosage: UNK, AS NEEDED
  16. FLAGYL [Concomitant]
     Active Substance: METRONIDAZOLE\METRONIDAZOLE HYDROCHLORIDE
     Dosage: UNK, AS NEEDED
  17. RESTASIS [Concomitant]
     Active Substance: CYCLOSPORINE
     Dosage: UNK

REACTIONS (15)
  - Visual impairment [Not Recovered/Not Resolved]
  - Musculoskeletal stiffness [Not Recovered/Not Resolved]
  - Vulvovaginal mycotic infection [Not Recovered/Not Resolved]
  - Vulvovaginal pruritus [Not Recovered/Not Resolved]
  - Cataract [Unknown]
  - Osteoarthritis [Unknown]
  - Fibromyalgia [Unknown]
  - Autoimmune disorder [Unknown]
  - Vulvovaginal candidiasis [Unknown]
  - Bacterial vaginosis [Unknown]
  - Mood swings [Unknown]
  - Hot flush [Unknown]
  - Vulvovaginal dryness [Unknown]
  - Tearfulness [Unknown]
  - Illness [Unknown]

NARRATIVE: CASE EVENT DATE: 20110101
